FAERS Safety Report 5677640-5 (Version None)
Quarter: 2008Q1

REPORT INFORMATION
  Report Type: 
  Country: None (occurrence: None)
  Receive Date: 20080324
  Receipt Date: 20080312
  Transmission Date: 20080703
  Serious: Yes (Death, Hospitalization)
  Sender: FDA-Public Use
  Company Number: US-ELI_LILLY_AND_COMPANY-US200511000866

PATIENT
  Sex: Male
  Weight: 133.79 kg

DRUGS (10)
  1. CYMBALTA [Suspect]
     Indication: MAJOR DEPRESSION
     Dosage: 20 MG, EACH MORNING
     Route: 048
     Dates: start: 20050114
  2. CYMBALTA [Suspect]
     Dosage: 30 MG, EACH MORNING
     Route: 048
     Dates: start: 20050101, end: 20050101
  3. CYMBALTA [Suspect]
     Dosage: 30 MG, 2/D
     Route: 048
     Dates: start: 20050128, end: 20050329
  4. CYMBALTA [Suspect]
     Dosage: 30 MG, UNK
     Dates: start: 20050330, end: 20050401
  5. PROZAC [Suspect]
     Dosage: 5 MG, UNK
     Dates: start: 20020123
  6. PROZAC [Suspect]
     Dosage: 60 MG, UNK
  7. EFFEXOR [Concomitant]
     Dates: start: 20020101, end: 20050101
  8. CLONAZEPAM [Concomitant]
     Dosage: 0.5 MG, 3/D
     Dates: start: 20020123
  9. XIFAXAN [Concomitant]
  10. URSO FALK [Concomitant]

REACTIONS (9)
  - ANXIETY [None]
  - CARDIAC ARREST [None]
  - GASTRITIS HAEMORRHAGIC [None]
  - HEPATIC NECROSIS [None]
  - HEPATORENAL SYNDROME [None]
  - INSOMNIA [None]
  - PANCREATIC NECROSIS [None]
  - SEPSIS [None]
  - SPLENIC INFARCTION [None]
